FAERS Safety Report 6854338-9 (Version None)
Quarter: 2010Q3

REPORT INFORMATION
  Report Type: 
  Country: None (occurrence: None)
  Receive Date: 20100717
  Receipt Date: 20080104
  Transmission Date: 20110219
  Serious: No
  Sender: FDA-Public Use
  Company Number: US-PFIZER INC-2008002042

PATIENT
  Sex: Female
  Weight: 85.1 kg

DRUGS (3)
  1. CHANTIX [Suspect]
     Indication: SMOKING CESSATION THERAPY
     Dates: start: 20071226, end: 20080104
  2. ANTIHYPERTENSIVES [Concomitant]
     Indication: HYPERTENSION
  3. OXYBUTYNIN CHLORIDE [Concomitant]

REACTIONS (7)
  - ABNORMAL DREAMS [None]
  - HEADACHE [None]
  - NAUSEA [None]
  - NIGHTMARE [None]
  - PALPITATIONS [None]
  - SLEEP DISORDER [None]
  - VOMITING [None]
